FAERS Safety Report 7216311-0 (Version None)
Quarter: 2011Q1

REPORT INFORMATION
  Report Type: 
  Country: None (occurrence: None)
  Receive Date: 20110107
  Receipt Date: 20101231
  Transmission Date: 20110831
  Serious: Yes (Death)
  Sender: FDA-Public Use
  Company Number: US-PFIZER INC-2011000459

PATIENT
  Age: 35 Year
  Sex: Male

DRUGS (8)
  1. AMLODIPINE BESYLATE [Suspect]
     Route: 048
  2. FENTANYL [Suspect]
  3. CITALOPRAM HYDROBROMIDE [Suspect]
     Route: 048
  4. LISINOPRIL [Suspect]
     Route: 048
  5. ACETAMINOPHEN [Suspect]
     Dosage: UNK
     Route: 048
  6. ALLOPURINOL [Suspect]
     Route: 048
  7. HYDROMORPHONE HCL [Suspect]
     Dosage: 28.6 NG/ML, UNK
     Route: 062
  8. COLCHICINE [Suspect]
     Route: 048

REACTIONS (2)
  - OVERDOSE [None]
  - COMPLETED SUICIDE [None]
